FAERS Safety Report 20731086 (Version 3)
Quarter: 2023Q1

REPORT INFORMATION
  Report Type: Report from Study
  Country: CA (occurrence: CA)
  Receive Date: 20220420
  Receipt Date: 20230309
  Transmission Date: 20230417
  Serious: Yes (Hospitalization, Other)
  Sender: FDA-Public Use
  Company Number: CA-GILEAD-2022-0578062

PATIENT
  Sex: Female

DRUGS (1)
  1. AZTREONAM LYSINE [Suspect]
     Active Substance: AZTREONAM LYSINE
     Indication: Cystic fibrosis
     Dosage: 75MG INHALED 3 TIMES A DAY FOR 28 DAYS THEN OFF FOR 28 DAYS
     Route: 055

REACTIONS (6)
  - Lower respiratory tract infection [Unknown]
  - Pneumonia [Unknown]
  - COVID-19 [Unknown]
  - Headache [Unknown]
  - Sneezing [Unknown]
  - Intentional product use issue [Unknown]
